FAERS Safety Report 13599416 (Version 1)
Quarter: 2017Q2

REPORT INFORMATION
  Report Type: Spontaneous
  Country: PR (occurrence: US)
  Receive Date: 20170531
  Receipt Date: 20170531
  Transmission Date: 20170830
  Serious: Yes (Other)
  Sender: FDA-Public Use
  Company Number: PR-009507513-1705USA012001

PATIENT
  Age: 22 Year
  Sex: Female
  Weight: 58.96 kg

DRUGS (2)
  1. NEXPLANON [Suspect]
     Active Substance: ETONOGESTREL
     Indication: MENSTRUAL CYCLE MANAGEMENT
  2. NEXPLANON [Suspect]
     Active Substance: ETONOGESTREL
     Indication: CONTRACEPTION
     Dosage: DOSE FREQUENCY: 3 YEAR IMPLANT, IMPLANT INSIDE THE LEFT ARM
     Route: 059

REACTIONS (8)
  - Unintended pregnancy [Unknown]
  - Pregnancy with implant contraceptive [Unknown]
  - Product used for unknown indication [Unknown]
  - Amenorrhoea [Unknown]
  - Feeling abnormal [Unknown]
  - Breast discharge [Unknown]
  - Fatigue [Unknown]
  - Gastrointestinal disorder [Unknown]

NARRATIVE: CASE EVENT DATE: 2017
